FAERS Safety Report 5778899-6 (Version None)
Quarter: 2008Q2

REPORT INFORMATION
  Report Type: 
  Country: None (occurrence: None)
  Receive Date: 20080619
  Receipt Date: 20080609
  Transmission Date: 20081010
  Serious: Yes (Hospitalization)
  Sender: FDA-Public Use
  Company Number: US-MERCK-0705USA04151

PATIENT
  Age: 73 Year
  Sex: Male

DRUGS (7)
  1. FOSAMAX [Suspect]
     Indication: OSTEOPOROSIS
     Route: 048
     Dates: start: 20010201
  2. FOSAMAX [Suspect]
     Route: 048
     Dates: start: 20010207, end: 20020101
  3. FOSAMAX [Suspect]
     Route: 048
     Dates: start: 20020329
  4. [THERAPY UNSPECIFIED] [Concomitant]
     Indication: EMPHYSEMA
     Route: 065
     Dates: start: 20010101
  5. COMBIVENT [Concomitant]
     Indication: CHRONIC OBSTRUCTIVE PULMONARY DISEASE
     Route: 065
  6. SEREVENT [Concomitant]
     Indication: CHRONIC OBSTRUCTIVE PULMONARY DISEASE
     Route: 065
  7. PULMICORT [Concomitant]
     Indication: CHRONIC OBSTRUCTIVE PULMONARY DISEASE
     Route: 065

REACTIONS (4)
  - CHEST PAIN [None]
  - DYSPNOEA [None]
  - PULMONARY FIBROSIS [None]
  - TOOTH LOSS [None]
